FAERS Safety Report 7209488-4 (Version None)
Quarter: 2010Q4

REPORT INFORMATION
  Report Type: 
  Country: None (occurrence: None)
  Receive Date: 20101222
  Receipt Date: 20101208
  Transmission Date: 20110411
  Serious: Yes (Hospitalization)
  Sender: FDA-Public Use
  Company Number: 2010005437

PATIENT
  Age: 52 Year
  Sex: Male

DRUGS (8)
  1. ERLOTINIB HYDROCHLORIDE [Suspect]
     Indication: LUNG ADENOCARCINOMA
     Dosage: 150 MG, QD, ORAL
     Route: 048
     Dates: start: 20090605, end: 20090612
  2. VOLTAREN [Concomitant]
  3. PREDNISOLONE [Concomitant]
  4. MORPHINE HYDROCHLORIDE (MORPHINE HYDROCHLORIDE) [Concomitant]
  5. TAKEPRON (LANSOPRAZOLE) [Concomitant]
  6. KELNAC (PLAUNOTOL) [Concomitant]
  7. ASPIRIN [Concomitant]
  8. NOVAMIN (PROCHLORPERAZINE) [Concomitant]

REACTIONS (1)
  - PULMONARY EMBOLISM [None]
